FAERS Safety Report 7996883-9 (Version None)
Quarter: 2011Q4

REPORT INFORMATION
  Report Type: 
  Country: None (occurrence: None)
  Receive Date: 20111221
  Receipt Date: 20111209
  Transmission Date: 20120403
  Serious: Yes (Other)
  Sender: FDA-Public Use
  Company Number: FR-BRISTOL-MYERS SQUIBB COMPANY-16184921

PATIENT
  Age: 63 Year
  Sex: Female
  Weight: 76 kg

DRUGS (12)
  1. PANTOPRAZOLE [Concomitant]
     Indication: GASTROOESOPHAGEAL REFLUX DISEASE
     Route: 048
  2. TENORMIN [Concomitant]
     Indication: HYPERTENSION
     Route: 048
  3. ATACAND [Concomitant]
  4. CANDESARTAN CILEXETIL AND HYDROCHLOROTHIAZIDE [Concomitant]
     Indication: HYPERTENSION
     Route: 048
  5. ESCITALOPRAM OXALATE [Concomitant]
     Indication: DEPRESSION
     Route: 048
  6. ONGLYZA [Suspect]
     Indication: DIABETES MELLITUS
     Route: 048
     Dates: start: 20110221, end: 20110228
  7. CRESTOR [Suspect]
     Indication: HYPERCHOLESTEROLAEMIA
     Dosage: INTERRUPTED ON: 24-FEB-2011 RESTARTED ON: 24-AUG-2011
     Route: 048
     Dates: start: 20101005
  8. OXAZEPAM [Concomitant]
  9. ACETAMINOPHEN AND TRAMADOL HCL [Concomitant]
     Indication: PAIN
     Route: 048
  10. TOCO [Concomitant]
     Indication: HYPERTRIGLYCERIDAEMIA
     Dosage: STRENGTH 500 UNIT NOT MENTIONED
  11. ACETAMINOPHEN [Concomitant]
     Indication: PAIN
     Dosage: 2-3 DOSAGE FORM
     Route: 048
  12. DEBRIDAT [Concomitant]
     Indication: GASTROINTESTINAL PAIN
     Dosage: 1-3 DOSAGE FORM
     Route: 048

REACTIONS (5)
  - ABDOMINAL PAIN UPPER [None]
  - TRANSAMINASES INCREASED [None]
  - ASTHENIA [None]
  - BLOOD ALKALINE PHOSPHATASE INCREASED [None]
  - GAMMA-GLUTAMYLTRANSFERASE INCREASED [None]
